FAERS Safety Report 8034477-X (Version None)
Quarter: 2011Q4

REPORT INFORMATION
  Report Type: 
  Country: None (occurrence: None)
  Receive Date: 20111202
  Receipt Date: 20110809
  Transmission Date: 20120403
  Serious: No
  Sender: FDA-Public Use
  Company Number: PHEH2011US00665

PATIENT
  Age: 45 Year
  Sex: Female

DRUGS (7)
  1. GEODON [Concomitant]
  2. XANAX [Concomitant]
  3. SYNTHROID [Concomitant]
  4. FANAPT [Suspect]
     Dosage: 2 MG, QD
  5. SEROQUEL [Suspect]
     Dosage: 100 MG, QD
  6. CYMBALTA [Concomitant]
  7. LAMICTAL [Concomitant]

REACTIONS (2)
  - EYE DISORDER [None]
  - URINARY INCONTINENCE [None]
